FAERS Safety Report 5746489-7 (Version None)
Quarter: 2008Q2

REPORT INFORMATION
  Report Type: 
  Country: None (occurrence: None)
  Receive Date: 20080521
  Receipt Date: 20080513
  Transmission Date: 20081010
  Serious: Yes (Other)
  Sender: FDA-Public Use
  Company Number: 08H-163-0314234-00

PATIENT
  Age: 30 Year

DRUGS (1)
  1. PANHEPRIN [Suspect]
     Indication: INTRAVENOUS CATHETER MANAGEMENT
     Dosage: 100 UNIT, PERIPHERALLY INSERTED CENTRAL CATHETER
     Dates: start: 20080430

REACTIONS (10)
  - CHEST DISCOMFORT [None]
  - CLONUS [None]
  - CONVULSION [None]
  - CYANOSIS [None]
  - DIZZINESS [None]
  - DYSPNOEA [None]
  - GRAND MAL CONVULSION [None]
  - MALAISE [None]
  - UNRESPONSIVE TO STIMULI [None]
  - VISUAL DISTURBANCE [None]
